FAERS Safety Report 6375506-9 (Version None)
Quarter: 2009Q3

REPORT INFORMATION
  Report Type: 
  Country: None (occurrence: None)
  Receive Date: 20090924
  Receipt Date: 20090918
  Transmission Date: 20100115
  Serious: Yes (Hospitalization, Other)
  Sender: FDA-Public Use
  Company Number: US-ROXANE LABORATORIES, INC.-2009-RO-00986RO

PATIENT
  Age: 33 Year
  Sex: Male

DRUGS (1)
  1. MORPHINE [Suspect]
     Indication: SUICIDE ATTEMPT
     Dates: start: 20090826

REACTIONS (3)
  - LOSS OF CONSCIOUSNESS [None]
  - SUICIDE ATTEMPT [None]
  - UNRESPONSIVE TO STIMULI [None]
